FAERS Safety Report 24780610 (Version 3)
Quarter: 2025Q1

REPORT INFORMATION
  Report Type: Report from Study
  Country: US (occurrence: US)
  Receive Date: 20241227
  Receipt Date: 20250116
  Transmission Date: 20250409
  Serious: Yes (Hospitalization)
  Sender: JOHNSON AND JOHNSON
  Company Number: US-JNJFOC-20241266060

PATIENT
  Age: 39 Year
  Sex: Female

DRUGS (3)
  1. UPTRAVI [Suspect]
     Active Substance: SELEXIPAG
     Indication: Pulmonary arterial hypertension
     Route: 048
     Dates: start: 202401
  2. UPTRAVI [Suspect]
     Active Substance: SELEXIPAG
     Route: 048
     Dates: start: 202401
  3. UPTRAVI [Suspect]
     Active Substance: SELEXIPAG
     Route: 048
     Dates: start: 202401

REACTIONS (11)
  - Hypersensitivity [Unknown]
  - Hypervolaemia [Unknown]
  - Palpitations [Unknown]
  - Nausea [Unknown]
  - Fatigue [Unknown]
  - Pain in jaw [Unknown]
  - Bone pain [Unknown]
  - Arthralgia [Unknown]
  - Rash [Recovering/Resolving]
  - Oral mucosal blistering [Unknown]
  - Back pain [Unknown]

NARRATIVE: CASE EVENT DATE: 20241213
